FAERS Safety Report 8507521 (Version 2)
Quarter: 2014Q1

REPORT INFORMATION
  Report Type: Spontaneous
  Country: US (occurrence: US)
  Receive Date: 20120412
  Receipt Date: 20140305
  Transmission Date: 20141002
  Serious: No
  Sender: FDA-Public Use
  Company Number: US-ASTRAZENECA-2011SE55625

PATIENT
  Age: 78 Year
  Sex: Female
  Weight: 81.6 kg

DRUGS (7)
  1. NEXIUM [Suspect]
     Indication: GASTROOESOPHAGEAL REFLUX DISEASE
     Route: 048
     Dates: start: 2010, end: 201401
  2. AGGRENOX [Concomitant]
     Indication: PLATELET DISORDER
  3. SYNTHROID [Concomitant]
     Indication: THYROID DISORDER
  4. FOLIC ACID [Concomitant]
  5. VITAMIN B12 [Concomitant]
  6. VITMAIN B2 [Concomitant]
  7. MULTI-VITAMIN [Concomitant]

REACTIONS (3)
  - Multiple allergies [Unknown]
  - Sinus disorder [Unknown]
  - Intentional drug misuse [Unknown]
